FAERS Safety Report 6816081-1 (Version None)
Quarter: 2010Q3

REPORT INFORMATION
  Report Type: 
  Country: None (occurrence: None)
  Receive Date: 20100705
  Receipt Date: 20100625
  Transmission Date: 20110219
  Serious: No
  Sender: FDA-Public Use
  Company Number: US-BIOGENIDEC-2010BI021734

PATIENT
  Age: 45 Year
  Sex: Female

DRUGS (1)
  1. AVONEX [Suspect]
     Indication: MULTIPLE SCLEROSIS
     Route: 030
     Dates: start: 20100625

REACTIONS (2)
  - INJECTION SITE PAIN [None]
  - WRONG TECHNIQUE IN DRUG USAGE PROCESS [None]
